FAERS Safety Report 13396048 (Version 1)
Quarter: 2017Q2

REPORT INFORMATION
  Report Type: Spontaneous
  Country: US (occurrence: US)
  Receive Date: 20170403
  Receipt Date: 20170403
  Transmission Date: 20170830
  Serious: Yes (Disabling, Other)
  Sender: FDA-Public Use
  Company Number: None

PATIENT
  Age: 73 Year
  Sex: Female
  Weight: 82.63 kg

DRUGS (10)
  1. CREON [Concomitant]
     Active Substance: PANCRELIPASE AMYLASE\PANCRELIPASE LIPASE\PANCRELIPASE PROTEASE
  2. FAMOTIDINE. [Concomitant]
     Active Substance: FAMOTIDINE
  3. ASPIRIN. [Concomitant]
     Active Substance: ASPIRIN
  4. B-12 GUMMY [Concomitant]
  5. TROSPIUM CHLORIDE TAB PAD 20MG [Suspect]
     Active Substance: TROSPIUM CHLORIDE
     Indication: INCONTINENCE
     Route: 048
     Dates: start: 20170124, end: 20170124
  6. MECLIZINE [Concomitant]
     Active Substance: MECLIZINE HYDROCHLORIDE
  7. FLUTICASONE. [Concomitant]
     Active Substance: FLUTICASONE
  8. SUCRALFATE. [Concomitant]
     Active Substance: SUCRALFATE
  9. PRAVASTATIN. [Concomitant]
     Active Substance: PRAVASTATIN
  10. ALIGN [Concomitant]
     Active Substance: BIFIDOBACTERIUM LONGUM SUBSP. INFANTIS

REACTIONS (3)
  - Constipation [None]
  - Dysuria [None]
  - Bladder pain [None]

NARRATIVE: CASE EVENT DATE: 20170124
